FAERS Safety Report 13630509 (Version 5)
Quarter: 2017Q3

REPORT INFORMATION
  Report Type: Report from Study
  Country: US (occurrence: US)
  Receive Date: 20170608
  Receipt Date: 20170919
  Transmission Date: 20171127
  Serious: Yes (Other)
  Sender: FDA-Public Use
  Company Number: US-AMGEN-USASL2017077397

PATIENT
  Age: 63 Year
  Sex: Male

DRUGS (2)
  1. REPATHA [Suspect]
     Active Substance: EVOLOCUMAB
     Indication: ARTERIOSCLEROSIS
     Dosage: 140 MG, Q2WK
     Route: 065
  2. REPATHA [Suspect]
     Active Substance: EVOLOCUMAB
     Indication: BLOOD CHOLESTEROL INCREASED
     Dosage: 420 MG/3.5ML, QMO
     Route: 065
     Dates: start: 20170325

REACTIONS (17)
  - Malaise [Unknown]
  - Mass [Unknown]
  - Bone swelling [Unknown]
  - Bone pain [Not Recovered/Not Resolved]
  - Musculoskeletal disorder [Unknown]
  - Underdose [Unknown]
  - Myalgia [Unknown]
  - Injection site mass [Unknown]
  - Arthropathy [Unknown]
  - Arthralgia [Unknown]
  - Asthenia [Unknown]
  - Fall [Unknown]
  - Joint swelling [Unknown]
  - Muscular weakness [Recovered/Resolved]
  - White blood cell count increased [Unknown]
  - Mobility decreased [Unknown]
  - Fatigue [Not Recovered/Not Resolved]

NARRATIVE: CASE EVENT DATE: 2017
